FAERS Safety Report 23744080 (Version 1)
Quarter: 2024Q2

REPORT INFORMATION
  Report Type: Spontaneous
  Country: US (occurrence: None)
  Receive Date: 20240414
  Receipt Date: 20240414
  Transmission Date: 20240716
  Serious: Yes (Other)
  Sender: FDA-Public Use
  Company Number: None

PATIENT
  Age: 31 Year
  Sex: Female
  Weight: 74.25 kg

DRUGS (3)
  1. COSMETICS [Suspect]
     Active Substance: COSMETICS
     Indication: Acne
     Route: 061
     Dates: start: 20240412, end: 20240414
  2. BUPROPION [Concomitant]
     Active Substance: BUPROPION
  3. BUSPAR [Concomitant]
     Active Substance: BUSPIRONE HYDROCHLORIDE

REACTIONS (4)
  - Chemical burn [None]
  - Thermal burn [None]
  - Thermal burn [None]
  - Application site burn [None]

NARRATIVE: CASE EVENT DATE: 20240414
